FAERS Safety Report 5688569-0 (Version None)
Quarter: 2008Q1

REPORT INFORMATION
  Report Type: 
  Country: None (occurrence: None)
  Receive Date: 20080331
  Receipt Date: 20080325
  Transmission Date: 20080703
  Serious: Yes (Hospitalization)
  Sender: FDA-Public Use
  Company Number: US-TEVA-169220USA

PATIENT
  Sex: Male

DRUGS (2)
  1. CISPLATIN 1 MG/ML, 10MG/ML, 20MG/ML, 50 MG/ML + 100MG/ML [Suspect]
     Indication: GASTRIC CANCER
     Dosage: CYCLE 1 (1 IN 4 WEEKS)
     Route: 042
     Dates: start: 20050518, end: 20050518
  2. FLUOROURACIL [Suspect]
     Indication: GASTRIC CANCER
     Dosage: CYCLE 1 X5DAYS OVER 120 HRS EVERY 28 DAYS
     Route: 042
     Dates: start: 20050518, end: 20050523

REACTIONS (2)
  - GASTRIC PERFORATION [None]
  - PERITONITIS [None]
